FAERS Safety Report 11271188 (Version 2)
Quarter: 2015Q3

REPORT INFORMATION
  Report Type: Spontaneous
  Country: US (occurrence: US)
  Receive Date: 20150714
  Receipt Date: 20150731
  Transmission Date: 20151125
  Serious: Yes (Other)
  Sender: FDA-Public Use
  Company Number: US-GLAXOSMITHKLINE INC.-US2015GSK100901

PATIENT
  Sex: Female

DRUGS (1)
  1. TYKERB [Suspect]
     Active Substance: LAPATINIB DITOSYLATE
     Indication: EPENDYMOMA
     Dosage: UNK, U
     Route: 065
     Dates: start: 20150402, end: 20150630

REACTIONS (2)
  - Neoplasm progression [Unknown]
  - Brain neoplasm [Unknown]
